FAERS Safety Report 7533910-7 (Version None)
Quarter: 2011Q2

REPORT INFORMATION
  Report Type: 
  Country: None (occurrence: None)
  Receive Date: 20110608
  Receipt Date: 20060703
  Transmission Date: 20111010
  Serious: Yes (Death)
  Sender: FDA-Public Use
  Company Number: PHNU2006DE02228

PATIENT
  Sex: Female
  Weight: 116 kg

DRUGS (1)
  1. FLUVASTATIN SODIUM [Suspect]
     Route: 048
     Dates: start: 20030804

REACTIONS (1)
  - DEATH [None]
